FAERS Safety Report 21172964 (Version 2)
Quarter: 2022Q3

REPORT INFORMATION
  Report Type: Report from Study
  Country: US (occurrence: US)
  Receive Date: 20220804
  Receipt Date: 20220811
  Transmission Date: 20221027
  Serious: Yes (Other)
  Sender: FDA-Public Use
  Company Number: US-ALNYLAM PHARMACEUTICALS, INC.-ALN-2022-002656

PATIENT

DRUGS (1)
  1. GIVLAARI [Suspect]
     Active Substance: GIVOSIRAN SODIUM
     Indication: Porphyria acute
     Dosage: UNK
     Route: 065
     Dates: start: 20220721

REACTIONS (8)
  - Porphyria acute [Recovering/Resolving]
  - Muscle spasms [Unknown]
  - Hyperhidrosis [Unknown]
  - Taste disorder [Unknown]
  - Abdominal mass [Unknown]
  - Blood potassium increased [Unknown]
  - Chest pain [Unknown]
  - Abdominal distension [Unknown]
